FAERS Safety Report 4732421-1 (Version None)
Quarter: 2005Q3

REPORT INFORMATION
  Report Type: 
  Country: None (occurrence: None)
  Receive Date: 20050801
  Receipt Date: 20050725
  Transmission Date: 20060218
  Serious: Yes (Hospitalization)
  Sender: FDA-Public Use
  Company Number: HQWYE621208MAR04

PATIENT
  Age: 41 Year
  Sex: Female
  Weight: 81.9 kg

DRUGS (10)
  1. RAPAMUNE [Suspect]
     Indication: PROPHYLAXIS AGAINST TRANSPLANT REJECTION
     Dosage: 2 MG 1X PER 1 DAY, ORAL
     Route: 048
     Dates: start: 20040209, end: 20040302
  2. PROGRAF [Suspect]
     Indication: PROPHYLAXIS AGAINST TRANSPLANT REJECTION
     Dosage: 1 MG 1X PER 1 DAY, ORAL
     Route: 048
  3. MYCELEX [Concomitant]
  4. VALCYTE [Concomitant]
  5. TUMS (CALCIUM CARBONATE/MAGNESIUM CARBOANTE/MAGNESIUM TRISILICATE) [Concomitant]
  6. LASIX [Concomitant]
  7. PREDNISONE [Concomitant]
  8. ZANAC (RANITIDINE HYDROCHLORIDE) [Concomitant]
  9. SEPTRA [Concomitant]
  10. COLACE (DOCUSATE SDOIUM) [Concomitant]

REACTIONS (6)
  - DRUG TOXICITY [None]
  - NAUSEA [None]
  - ORAL INTAKE REDUCED [None]
  - PERIRENAL HAEMATOMA [None]
  - PERITONEAL DIALYSIS [None]
  - RENAL TUBULAR NECROSIS [None]
